FAERS Safety Report 8416250-3 (Version None)
Quarter: 2012Q2

REPORT INFORMATION
  Report Type: 
  Country: None (occurrence: None)
  Receive Date: 20120530
  Receipt Date: 20120516
  Transmission Date: 20120825
  Serious: Yes (Other)
  Sender: FDA-Public Use
  Company Number: JP-1192215

PATIENT
  Age: 57 Year
  Sex: Female

DRUGS (1)
  1. TRAVATAN [Suspect]
     Dosage: (OPHTHALMIC)
     Route: 047

REACTIONS (2)
  - VISUAL ACUITY REDUCED [None]
  - CYSTOID MACULAR OEDEMA [None]
